FAERS Safety Report 9801036 (Version 7)
Quarter: 2018Q3

REPORT INFORMATION
  Report Type: Spontaneous
  Country: FR (occurrence: FR)
  Receive Date: 20140107
  Receipt Date: 20180806
  Transmission Date: 20181010
  Serious: Yes (Death, Hospitalization, Other)
  Sender: FDA-Public Use
  Company Number: FR-CELGENEUS-056-21880-13125337

PATIENT

DRUGS (2)
  1. AZACITIDINE. [Suspect]
     Active Substance: AZACITIDINE
     Indication: ACUTE MYELOID LEUKAEMIA
     Route: 058
  2. REVLIMID [Suspect]
     Active Substance: LENALIDOMIDE
     Indication: ACUTE MYELOID LEUKAEMIA
     Route: 048

REACTIONS (32)
  - Cerebral haemorrhage [Unknown]
  - Hepatitis [Unknown]
  - Haemorrhage [Unknown]
  - Aplastic anaemia [Fatal]
  - Neutropenia [Unknown]
  - Herpes zoster [Unknown]
  - Gastroenteritis [Unknown]
  - Hepatotoxicity [Unknown]
  - Rash [Unknown]
  - Blood creatinine abnormal [Unknown]
  - Cataract [Unknown]
  - Febrile neutropenia [Unknown]
  - Multiple organ dysfunction syndrome [Unknown]
  - Vascular purpura [Unknown]
  - Pyrexia [Unknown]
  - Acute myeloid leukaemia recurrent [Unknown]
  - Infection [Unknown]
  - Atrial fibrillation [Unknown]
  - Haematotoxicity [Unknown]
  - Diarrhoea [Unknown]
  - Squamous cell carcinoma [Unknown]
  - Cardiac dysfunction [Unknown]
  - Depression [Unknown]
  - Neuropathy peripheral [Unknown]
  - Cardiotoxicity [Unknown]
  - Pseudomembranous colitis [Unknown]
  - Treatment failure [Unknown]
  - Vomiting [Unknown]
  - Insomnia [Unknown]
  - Thrombocytopenia [Unknown]
  - Fatigue [Unknown]
  - Deep vein thrombosis [Unknown]
